FAERS Safety Report 17588268 (Version 4)
Quarter: 2020Q3

REPORT INFORMATION
  Report Type: Report from Study
  Country: AU (occurrence: AU)
  Receive Date: 20200327
  Receipt Date: 20200713
  Transmission Date: 20201102
  Serious: Yes (Hospitalization)
  Sender: FDA-Public Use
  Company Number: AU-ROCHE-2573745

PATIENT
  Age: 60 Year
  Sex: Male
  Weight: 71.2 kg

DRUGS (14)
  1. CABOZANTINIB [Suspect]
     Active Substance: CABOZANTINIB
     Indication: HEPATOCELLULAR CARCINOMA
     Dosage: DATE OF MOST RECENT DOSE OF CABOZANTINIB PRIOR TO EVENT ONSET 09/FEB/2020
     Route: 048
     Dates: start: 20191023
  2. ALLOPURINOL. [Concomitant]
     Active Substance: ALLOPURINOL
  3. THIAMINE. [Concomitant]
     Active Substance: THIAMINE
  4. PRODEINE [Concomitant]
  5. ROSUVASTATIN. [Concomitant]
     Active Substance: ROSUVASTATIN
  6. ELEUPHRAT [Concomitant]
     Active Substance: BETAMETHASONE DIPROPIONATE
  7. GASTROSTOP [Concomitant]
  8. CABOZANTINIB [Suspect]
     Active Substance: CABOZANTINIB
     Route: 048
     Dates: start: 20200406
  9. VERAPAMIL [Concomitant]
     Active Substance: VERAPAMIL HYDROCHLORIDE
  10. DOXYCYCLINE. [Concomitant]
     Active Substance: DOXYCYCLINE
  11. BENZAC [Concomitant]
     Active Substance: SALICYLIC ACID
  12. CEPHALEXIN. [Concomitant]
     Active Substance: CEPHALEXIN
  13. ATEZOLIZUMAB. [Suspect]
     Active Substance: ATEZOLIZUMAB
     Indication: HEPATOCELLULAR CARCINOMA
     Dosage: DATE OF MOST RECENT DOSE OF ATEZOLIZUMAB PRIOR TO EVENT ONSET 24/FEB/2020
     Route: 041
     Dates: start: 20191023
  14. UREDERM [Concomitant]

REACTIONS (2)
  - Hypotension [Recovered/Resolved]
  - Liver function test abnormal [Recovered/Resolved]

NARRATIVE: CASE EVENT DATE: 20200316
